FAERS Safety Report 4745586-2 (Version None)
Quarter: 2005Q3

REPORT INFORMATION
  Report Type: 
  Country: None (occurrence: None)
  Receive Date: 20050815
  Receipt Date: 20050803
  Transmission Date: 20060218
  Serious: Yes (Hospitalization, Other)
  Sender: FDA-Public Use
  Company Number: 2005111227

PATIENT
  Age: 77 Year
  Sex: Female
  Weight: 68.9467 kg

DRUGS (6)
  1. LIPITOR [Suspect]
     Indication: BLOOD CHOLESTEROL INCREASED
     Dosage: 20 MG (20 MG, 1 IN 1 D), ORAL
     Route: 048
     Dates: start: 20041001, end: 20050601
  2. XANAX [Suspect]
     Indication: TREMOR
     Dosage: ORAL
     Route: 048
     Dates: start: 20041101
  3. PLAVIX [Concomitant]
  4. VITAMINS (VITAMINS) [Concomitant]
  5. CRANBERRY (VACCINIUM MACROCARPON) [Concomitant]
  6. CALCIUM (CALCIUM) [Concomitant]

REACTIONS (7)
  - ASTHENIA [None]
  - BONE DENSITY DECREASED [None]
  - DYSPNOEA [None]
  - FEELING ABNORMAL [None]
  - HYPOKINESIA [None]
  - MUSCULAR WEAKNESS [None]
  - TREMOR [None]
